FAERS Safety Report 10246263 (Version 2)
Quarter: 2014Q2

REPORT INFORMATION
  Report Type: Report from Study
  Country: FR (occurrence: FR)
  Receive Date: 20140619
  Receipt Date: 20140623
  Transmission Date: 20141212
  Serious: Yes (Hospitalization)
  Sender: FDA-Public Use
  Company Number: FR-B.I. PHARMACEUTICALS,INC./RIDGEFIELD-2014-BI-27144BI

PATIENT
  Age: 75 Year
  Sex: Female
  Weight: 58 kg

DRUGS (5)
  1. PRADAXA [Suspect]
     Indication: ATRIAL FIBRILLATION
     Dosage: 300 MG
     Route: 048
     Dates: start: 20140220
  2. PERINDOPRIL [Concomitant]
     Dosage: 2 MG
     Route: 048
     Dates: start: 201402
  3. BISOCE [Concomitant]
     Dosage: 5 MG
     Route: 048
     Dates: start: 201402
  4. PANTOPRAZOLE [Concomitant]
     Dosage: 40 MG
     Route: 048
     Dates: start: 20140404
  5. NOCTAMIDE [Concomitant]
     Dosage: 1 MG
     Route: 048
     Dates: start: 20140404

REACTIONS (1)
  - Hypotension [Recovered/Resolved]
